FAERS Safety Report 5936738-4 (Version None)
Quarter: 2008Q4

REPORT INFORMATION
  Report Type: 
  Country: None (occurrence: None)
  Receive Date: 20081029
  Receipt Date: 20081022
  Transmission Date: 20090506
  Serious: Yes (Death, Hospitalization)
  Sender: FDA-Public Use
  Company Number: 2008BI027498

PATIENT
  Age: 29 Year
  Sex: Male

DRUGS (2)
  1. TYSABRI [Suspect]
     Indication: MULTIPLE SCLEROSIS
     Dosage: 300 MG; QM; IV
     Route: 030
     Dates: start: 20071228, end: 20080912
  2. AVONEX [Concomitant]

REACTIONS (2)
  - MOTOR DYSFUNCTION [None]
  - PNEUMONIA ASPIRATION [None]
